FAERS Safety Report 8252464-3 (Version None)
Quarter: 2012Q2

REPORT INFORMATION
  Report Type: 
  Country: None (occurrence: None)
  Receive Date: 20120402
  Receipt Date: 20110715
  Transmission Date: 20120825
  Serious: No
  Sender: FDA-Public Use
  Company Number: US-ABBOTT-11P-163-0839490-00

PATIENT
  Sex: Male

DRUGS (4)
  1. ANDROGEL [Suspect]
     Indication: PRODUCT USED FOR UNKNOWN INDICATION
     Dates: start: 20110705
  2. VENTOLIN [Concomitant]
     Indication: ASTHMA
  3. SINGULAIR [Concomitant]
     Indication: ASTHMA
  4. ADVAIR DISKUS 100/50 [Concomitant]
     Indication: ASTHMA

REACTIONS (1)
  - APPLICATION SITE ERYTHEMA [None]
